FAERS Safety Report 6188858-X (Version None)
Quarter: 2009Q2

REPORT INFORMATION
  Report Type: 
  Country: None (occurrence: None)
  Receive Date: 20090513
  Receipt Date: 20090501
  Transmission Date: 20091009
  Serious: Yes (Hospitalization, Other)
  Sender: FDA-Public Use
  Company Number: GB-PFIZER INC-2009171829

PATIENT
  Age: 75 Year

DRUGS (7)
  1. GABAPENTIN [Suspect]
     Indication: ARTHRALGIA
     Dosage: 300 MG, 3X/DAY
     Route: 048
  2. DICLOFENAC [Concomitant]
     Indication: ARTHRALGIA
     Dosage: 75 MG, 2X/DAY
  3. TRAMADOL [Concomitant]
     Indication: ARTHRALGIA
     Dosage: 50 MG, 4X/DAY
  4. DIHYDROCODEINE [Concomitant]
     Indication: ARTHRALGIA
     Dosage: 30 MG, 4X/DAY
  5. FUROSEMIDE [Concomitant]
     Indication: HYPERTENSION
     Dosage: 80 MG, 1X/DAY
  6. AMLODIPINE [Concomitant]
     Indication: HYPERTENSION
     Dosage: 5 MG, 1X/DAY
  7. IRBESARTAN [Concomitant]
     Indication: HYPERTENSION
     Dosage: 300 MG, 1X/DAY

REACTIONS (11)
  - ANAEMIA [None]
  - DEPRESSED LEVEL OF CONSCIOUSNESS [None]
  - DRUG TOXICITY [None]
  - FALL [None]
  - LIVER FUNCTION TEST ABNORMAL [None]
  - LOSS OF CONSCIOUSNESS [None]
  - MEDICATION ERROR [None]
  - OFF LABEL USE [None]
  - RENAL FAILURE [None]
  - SEPTIC SHOCK [None]
  - SOMNOLENCE [None]
